FAERS Safety Report 7545176-2 (Version None)
Quarter: 2011Q2

REPORT INFORMATION
  Report Type: 
  Country: None (occurrence: None)
  Receive Date: 20110610
  Receipt Date: 20110610
  Transmission Date: 20111010
  Serious: No
  Sender: FDA-Public Use
  Company Number: None

PATIENT
  Age: 42 Year
  Sex: Female
  Weight: 65.7716 kg

DRUGS (1)
  1. PHENERGAN HCL [Suspect]
     Indication: MIGRAINE
     Dates: start: 20110523

REACTIONS (2)
  - INJECTION SITE ANAESTHESIA [None]
  - INJECTION SITE PRURITUS [None]
